FAERS Safety Report 4896684-4 (Version None)
Quarter: 2006Q1

REPORT INFORMATION
  Report Type: 
  Country: None (occurrence: None)
  Receive Date: 20060131
  Receipt Date: 20060119
  Transmission Date: 20060701
  Serious: Yes (Other)
  Sender: FDA-Public Use
  Company Number: DE-JNJFOC-20060103840

PATIENT
  Sex: Female
  Weight: 55 kg

DRUGS (1)
  1. RISPERDAL [Suspect]
     Indication: DRUG USE FOR UNKNOWN INDICATION
     Route: 048

REACTIONS (7)
  - AGITATION [None]
  - DYSKINESIA [None]
  - HYPOTENSION [None]
  - OROPHARYNGEAL SPASM [None]
  - OVERDOSE [None]
  - SUICIDAL IDEATION [None]
  - TACHYCARDIA [None]
